FAERS Safety Report 6779704-1 (Version None)
Quarter: 2010Q2

REPORT INFORMATION
  Report Type: 
  Country: None (occurrence: None)
  Receive Date: 20100618
  Receipt Date: 20100608
  Transmission Date: 20101027
  Serious: Yes (Other)
  Sender: FDA-Public Use
  Company Number: PHEH2007US14501

PATIENT
  Sex: Male
  Weight: 90.703 kg

DRUGS (21)
  1. ZOMETA [Suspect]
     Dosage: 4 MG, Q28 DAYS
     Route: 042
     Dates: end: 20060424
  2. OXYCONTIN [Concomitant]
  3. PERCOCET [Concomitant]
  4. INTERFERON [Concomitant]
  5. RADIATION THERAPY [Concomitant]
     Dosage: UNK
     Dates: start: 20080103, end: 20080211
  6. ASPIRIN [Concomitant]
  7. AMIODARONE [Concomitant]
  8. FAMOTIDINE [Concomitant]
  9. METOCLOPRAMIDE [Concomitant]
  10. SORAFENIB [Concomitant]
     Dosage: UNK
     Dates: start: 20060201
  11. LEXAPRO [Concomitant]
     Dosage: 20 MG TABS, 1 TAB BY MOUTH AT BEDTIME
  12. MEGACE [Concomitant]
     Dosage: 40 MG/ML, SUSP, 20 CC'S BY MOUTH DAILY
  13. FLOMAX [Concomitant]
     Dosage: 0.4 MG, 1 TABLET BY MOUTH DAILY
  14. ATENOLOL ^ALIUD PHARMA^ [Concomitant]
     Dosage: 50 MG, 1 DAILY BY MOUTH
  15. MS CONTIN [Concomitant]
     Dosage: 100 MG, Q12H
  16. HYDROCHLOROTHIAZIDE [Concomitant]
     Dosage: 25 MG, QD
     Route: 048
  17. SERTRALINE HCL [Concomitant]
     Dosage: 50 MG, QHS
     Route: 048
  18. ZOLPIDEM [Concomitant]
     Dosage: 5 MG, QHS
  19. PANTOPRAZOLE [Concomitant]
     Dosage: 40 MG, QD
     Route: 048
  20. NEXAVAR [Concomitant]
     Dosage: 200 MG, BID
  21. GABAPENTIN [Concomitant]
     Dosage: 600 MG, BID
     Route: 048

REACTIONS (36)
  - AMNESIA [None]
  - ANAEMIA [None]
  - ANHEDONIA [None]
  - ANXIETY [None]
  - BONE DISORDER [None]
  - CONSTIPATION [None]
  - DECREASED APPETITE [None]
  - DENTAL CARE [None]
  - DENTAL CARIES [None]
  - DIARRHOEA [None]
  - FATIGUE [None]
  - GINGIVAL PAIN [None]
  - GINGIVAL ULCERATION [None]
  - HEADACHE [None]
  - HYPOAESTHESIA [None]
  - INJURY [None]
  - INTERVERTEBRAL DISC DISORDER [None]
  - LUMBAR SPINAL STENOSIS [None]
  - METASTATIC RENAL CELL CARCINOMA [None]
  - MOUTH ULCERATION [None]
  - NEPHRECTOMY [None]
  - NEUTROPENIA [None]
  - ORAL DISORDER [None]
  - ORAL PAIN [None]
  - OSTEOMYELITIS ACUTE [None]
  - OSTEONECROSIS OF JAW [None]
  - OSTEOPENIA [None]
  - PAIN [None]
  - PALMAR-PLANTAR ERYTHRODYSAESTHESIA SYNDROME [None]
  - PYREXIA [None]
  - SEQUESTRECTOMY [None]
  - SURGERY [None]
  - TOOTH EXTRACTION [None]
  - TOOTH FRACTURE [None]
  - TOOTH REPAIR [None]
  - WEIGHT DECREASED [None]
